FAERS Safety Report 6161147-5 (Version None)
Quarter: 2009Q2

REPORT INFORMATION
  Report Type: 
  Country: None (occurrence: None)
  Receive Date: 20090417
  Receipt Date: 20090417
  Transmission Date: 20091009
  Serious: Yes (Life-Threatening, Disabling, Other)
  Sender: FDA-Public Use
  Company Number: None

PATIENT
  Age: 67 Year
  Sex: Male
  Weight: 113.3993 kg

DRUGS (1)
  1. CARDURA [Suspect]
     Dosage: HOME 1 PILL TAKEN AT NIGHT

REACTIONS (3)
  - COLONOSCOPY ABNORMAL [None]
  - HAEMORRHAGE [None]
  - HYPOTENSION [None]
